FAERS Safety Report 21773598 (Version 1)
Quarter: 2022Q4

REPORT INFORMATION
  Report Type: Spontaneous
  Country: US (occurrence: None)
  Receive Date: 20221223
  Receipt Date: 20221223
  Transmission Date: 20230112
  Serious: Yes (Other)
  Sender: FDA-Public Use
  Company Number: None

PATIENT
  Age: 16 Year
  Sex: Male

DRUGS (4)
  1. LITHIUM [Suspect]
     Active Substance: LITHIUM
     Indication: Affective disorder
     Dosage: FREQUENCY : AT BEDTIME;?
     Route: 048
     Dates: start: 20220812, end: 20220818
  2. DIPHENHYDRAMINE [Concomitant]
     Active Substance: DIPHENHYDRAMINE
  3. HALOPERIDOL [Concomitant]
     Active Substance: HALOPERIDOL
  4. TRAZODONE [Concomitant]
     Active Substance: TRAZODONE HYDROCHLORIDE

REACTIONS (9)
  - Emotional disorder [None]
  - Abnormal behaviour [None]
  - Dizziness [None]
  - Myalgia [None]
  - Orthostatic hypotension [None]
  - Somatic dysfunction [None]
  - Anxiety [None]
  - Paradoxical drug reaction [None]
  - Therapy cessation [None]
